FAERS Safety Report 18756177 (Version 1)
Quarter: 2021Q1

REPORT INFORMATION
  Report Type: Report from Study
  Country: CA (occurrence: CA)
  Receive Date: 20210119
  Receipt Date: 20210119
  Transmission Date: 20210419
  Serious: Yes (Death)
  Sender: FDA-Public Use
  Company Number: CA-PFIZER INC-2021030091

PATIENT

DRUGS (9)
  1. DOXORUBICIN HCL [Suspect]
     Active Substance: DOXORUBICIN HYDROCHLORIDE
     Indication: SMALL CELL LUNG CANCER
     Dosage: 40 MG/M2 FOR WEEKS 1,3,5,7,9
     Route: 042
  2. ETOPOSIDE. [Suspect]
     Active Substance: ETOPOSIDE
     Indication: SMALL CELL LUNG CANCER EXTENSIVE STAGE
     Dosage: 80 MG/M2 FOR DAY 2+3 IN WEEKS 1,3,5,7,9
     Route: 048
  3. COTRIMOXAZOLE [Concomitant]
     Active Substance: SULFAMETHOXAZOLE\TRIMETHOPRIM
     Dosage: 1 DS ORAL 2 TIMES A DAY FOR WEEKS 2?10
     Route: 048
  4. CIMETINE [Concomitant]
     Dosage: 600 MG TWO TIMES A DAY FOR WEEKS 1?10
  5. VINCRISTINE SULFATE. [Suspect]
     Active Substance: VINCRISTINE SULFATE
     Indication: SMALL CELL LUNG CANCER
     Dosage: 1 MG/M2 FOR WEEKS 1,2,4,6,8
     Route: 042
  6. PREDNISONE. [Concomitant]
     Active Substance: PREDNISONE
     Dosage: 50 MG DAILY FOR WEEK 1?5 AND ALTERNATE DAYS FOR WEEK 6?9
  7. CISPLATIN. [Suspect]
     Active Substance: CISPLATIN
     Indication: SMALL CELL LUNG CANCER
     Dosage: 25 MG/M2 FROM WEEK 1?8
     Route: 042
  8. ETOPOSIDE. [Suspect]
     Active Substance: ETOPOSIDE
     Indication: SMALL CELL LUNG CANCER EXTENSIVE STAGE
     Dosage: AT 80 MG/M2 FOR DAY 1 ON WEEKS 1,3,5,7,9
     Route: 042
  9. KETOCONAZOLE. [Concomitant]
     Active Substance: KETOCONAZOLE
     Dosage: 200 MG ORAL DAILY FOR WEEKS 2?10
     Route: 048

REACTIONS (1)
  - Infection [Fatal]
